FAERS Safety Report 4404814-3 (Version None)
Quarter: 2004Q3

REPORT INFORMATION
  Report Type: 
  Country: None (occurrence: None)
  Receive Date: 20040715
  Receipt Date: 20040629
  Transmission Date: 20050211
  Serious: Yes (Hospitalization)
  Sender: FDA-Public Use
  Company Number: 8002362

PATIENT
  Age: 56 Year
  Sex: Male
  Weight: 117.27 kg

DRUGS (5)
  1. KEPPRA [Suspect]
     Indication: CONVULSION
     Dosage: 1000 MG PO
     Route: 048
     Dates: start: 20021201, end: 20030501
  2. KEPPRA [Suspect]
     Indication: CONVULSION
     Dosage: 250 MG 2/D PO
     Route: 048
     Dates: start: 20030501, end: 20030601
  3. KEPPRA [Suspect]
     Indication: CONVULSION
     Dosage: 250 MG PO
     Route: 048
     Dates: start: 20030601, end: 20030101
  4. PHENOBARBITAL TAB [Concomitant]
  5. KLONOPIN [Concomitant]

REACTIONS (8)
  - ASTHENIA [None]
  - BACTERIA SPUTUM IDENTIFIED [None]
  - DIZZINESS [None]
  - FATIGUE [None]
  - MEDICATION ERROR [None]
  - PNEUMONIA [None]
  - RESPIRATORY FAILURE [None]
  - TREATMENT NONCOMPLIANCE [None]
